FAERS Safety Report 10788415 (Version 5)
Quarter: 2015Q1

REPORT INFORMATION
  Report Type: Spontaneous
  Country: US (occurrence: US)
  Receive Date: 20150212
  Receipt Date: 20150311
  Transmission Date: 20150721
  Serious: Yes (Hospitalization)
  Sender: FDA-Public Use
  Company Number: US-JNJFOC-20150204412

PATIENT
  Age: 93 Year
  Sex: Female
  Weight: 49.9 kg

DRUGS (16)
  1. KLOR-CON [Concomitant]
     Active Substance: POTASSIUM CHLORIDE
     Route: 048
  2. XARELTO [Suspect]
     Active Substance: RIVAROXABAN
     Indication: CEREBROVASCULAR ACCIDENT PROPHYLAXIS
     Route: 048
     Dates: start: 20141030, end: 20150112
  3. ESTRADIOL. [Concomitant]
     Active Substance: ESTRADIOL
     Route: 061
  4. FOLGARD (FABB) [Concomitant]
     Route: 048
  5. LATANOPROST. [Concomitant]
     Active Substance: LATANOPROST
     Route: 065
  6. MELATONIN [Concomitant]
     Active Substance: MELATONIN
     Route: 048
  7. RESTASIS [Concomitant]
     Active Substance: CYCLOSPORINE
     Route: 065
  8. LASIX [Concomitant]
     Active Substance: FUROSEMIDE
     Route: 048
  9. XARELTO [Suspect]
     Active Substance: RIVAROXABAN
     Indication: ATRIAL FIBRILLATION
     Route: 048
     Dates: start: 20141030, end: 20150112
  10. HYDROCODONE W/ACETAMINOPHEN [Concomitant]
     Active Substance: ACETAMINOPHEN\HYDROCODONE BITARTRATE
     Dosage: 5/375
     Route: 065
  11. RHINOCORT AQUA [Concomitant]
     Active Substance: BUDESONIDE
     Route: 045
  12. CARDURA [Concomitant]
     Active Substance: DOXAZOSIN MESYLATE
     Route: 048
  13. LOSARTAN [Concomitant]
     Active Substance: LOSARTAN
     Route: 048
  14. PROVENTIL [Concomitant]
     Active Substance: ALBUTEROL
     Dosage: PUFFS
     Route: 065
  15. TOPROL XL [Concomitant]
     Active Substance: METOPROLOL SUCCINATE
     Route: 048
  16. CO-Q10 [Concomitant]
     Route: 065

REACTIONS (3)
  - Gastrointestinal haemorrhage [Recovered/Resolved]
  - Rectal haemorrhage [Recovered/Resolved]
  - Gastritis [Recovered/Resolved]

NARRATIVE: CASE EVENT DATE: 20150112
